FAERS Safety Report 15619684 (Version 1)
Quarter: 2018Q4

REPORT INFORMATION
  Report Type: Report from Study
  Country: GB (occurrence: GB)
  Receive Date: 20181115
  Receipt Date: 20181115
  Transmission Date: 20190205
  Serious: Yes (Other)
  Sender: FDA-Public Use
  Company Number: GB-TEVA-2018-GB-974666

PATIENT
  Sex: Male

DRUGS (1)
  1. COPAXONE [Suspect]
     Active Substance: GLATIRAMER ACETATE
     Indication: MULTIPLE SCLEROSIS
     Route: 058
     Dates: start: 20180927, end: 20181008

REACTIONS (7)
  - Headache [Unknown]
  - Impaired driving ability [Unknown]
  - Blindness unilateral [Unknown]
  - Vision blurred [Unknown]
  - Pupils unequal [Unknown]
  - Photophobia [Unknown]
  - Housebound [Unknown]
